FAERS Safety Report 7791307-9 (Version None)
Quarter: 2011Q4

REPORT INFORMATION
  Report Type: 
  Country: None (occurrence: None)
  Receive Date: 20111003
  Receipt Date: 20110919
  Transmission Date: 20120403
  Serious: No
  Sender: FDA-Public Use
  Company Number: US-BIOGENIDEC-2011BI036012

PATIENT
  Age: 55 Year
  Sex: Female

DRUGS (4)
  1. AVONEX [Suspect]
     Indication: MULTIPLE SCLEROSIS
     Route: 030
     Dates: start: 19980101, end: 20030101
  2. AVONEX [Suspect]
     Route: 030
     Dates: start: 20030101, end: 20110701
  3. AVONEX [Suspect]
     Route: 030
     Dates: start: 20110801
  4. SYNTHROID [Concomitant]
     Indication: THYROIDECTOMY
     Dates: start: 19950101

REACTIONS (5)
  - ANXIETY [None]
  - DIABETES MELLITUS [None]
  - FATIGUE [None]
  - ARTHRALGIA [None]
  - MYALGIA [None]
